FAERS Safety Report 9745363 (Version 2)
Quarter: 2013Q4

REPORT INFORMATION
  Report Type: Spontaneous
  Country: BR (occurrence: BR)
  Receive Date: 20131211
  Receipt Date: 20131211
  Transmission Date: 20140711
  Serious: Yes (Death)
  Sender: FDA-Public Use
  Company Number: BR-PFIZER INC-2012121038

PATIENT
  Age: 60 Year
  Sex: Male
  Weight: 86.5 kg

DRUGS (4)
  1. SUTENT [Suspect]
     Indication: RENAL CELL CARCINOMA
     Dosage: 50 MG (ONE CAPSULE), 1X/DAY, CYCLIC (4X2)
     Route: 048
     Dates: start: 20120503
  2. ROXFLAN [Concomitant]
     Dosage: 10 MG, 1X/DAY
  3. PURAN T4 [Concomitant]
  4. OXCORD [Concomitant]

REACTIONS (11)
  - Death [Fatal]
  - Blood pressure increased [Unknown]
  - Back pain [Unknown]
  - Skin discolouration [Unknown]
  - Feeling cold [Unknown]
  - Diarrhoea [Recovered/Resolved]
  - Anorectal discomfort [Unknown]
  - Diarrhoea [Unknown]
  - Pain in extremity [Not Recovered/Not Resolved]
  - Gait disturbance [Unknown]
  - Nodule [Unknown]
